FAERS Safety Report 8881987 (Version 2)
Quarter: 2012Q4

REPORT INFORMATION
  Report Type: 
  Country: US (occurrence: US)
  Receive Date: 20121102
  Receipt Date: 20121116
  Transmission Date: 20130627
  Serious: Yes (Other)
  Sender: FDA-Public Use
  Company Number: US-ASTRAZENECA-2012SE81759

PATIENT
  Age: 66 Year
  Sex: Female

DRUGS (1)
  1. SYMBICORT PMDI [Suspect]
     Dosage: UNKNOWN STRENGTH AND FREQUENCY
     Route: 055

REACTIONS (5)
  - Renal impairment [Unknown]
  - Malaise [Unknown]
  - Abasia [Unknown]
  - Limb injury [Unknown]
  - Joint injury [Unknown]
